FAERS Safety Report 9058737 (Version 7)
Quarter: 2014Q2

REPORT INFORMATION
  Report Type: Spontaneous
  Country: JP (occurrence: JP)
  Receive Date: 20130204
  Receipt Date: 20140602
  Transmission Date: 20141212
  Serious: Yes (Hospitalization, Other)
  Sender: FDA-Public Use
  Company Number: JP-CELGENEUS-087-21880-13011600

PATIENT
  Age: 75 Year
  Sex: Female

DRUGS (43)
  1. REVLIMID [Suspect]
     Indication: PLASMA CELL MYELOMA
     Dosage: 10 MILLIGRAM
     Route: 048
     Dates: start: 20120823
  2. REVLIMID [Suspect]
     Dosage: 15 MILLIGRAM
     Route: 048
     Dates: start: 20130118, end: 20130120
  3. REVLIMID [Suspect]
     Dosage: 10 MILLIGRAM
     Route: 048
     Dates: end: 20130211
  4. ELOTUZUMAB [Suspect]
     Indication: PLASMA CELL MYELOMA
     Dosage: 10 MILLIGRAM/KILOGRAM
     Route: 042
     Dates: start: 20120823, end: 20130207
  5. LENADEX [Suspect]
     Indication: PLASMA CELL MYELOMA
     Dosage: 28 MILLIGRAM
     Route: 048
     Dates: start: 20120823
  6. LENADEX [Suspect]
     Route: 048
     Dates: start: 20130117, end: 20130117
  7. LENADEX [Suspect]
     Route: 048
     Dates: start: 20130118, end: 20130120
  8. LENADEX [Suspect]
     Route: 048
     Dates: start: 20130124, end: 20130207
  9. DEXAMETHASONE [Suspect]
     Indication: PLASMA CELL MYELOMA
     Dosage: 8 MILLIGRAM
     Route: 041
     Dates: start: 20120823, end: 20130207
  10. INDOMETHACIN [Concomitant]
     Indication: ADVERSE EVENT
     Route: 065
     Dates: start: 20120905, end: 20121020
  11. INDOMETHACIN [Concomitant]
     Route: 065
     Dates: start: 20121114, end: 20121115
  12. INDOMETHACIN [Concomitant]
     Route: 065
     Dates: start: 20121208, end: 20121208
  13. INDOMETHACIN [Concomitant]
     Route: 065
     Dates: start: 20130101, end: 20130109
  14. INDOMETHACIN [Concomitant]
     Route: 065
     Dates: start: 20130217
  15. INFLUENZA HA [Concomitant]
     Indication: PRODUCT USED FOR UNKNOWN INDICATION
     Route: 065
     Dates: start: 20121206, end: 20121206
  16. ZOLENDRONIC ACID HYDRATE [Concomitant]
     Indication: PRODUCT USED FOR UNKNOWN INDICATION
     Route: 065
     Dates: start: 20120927, end: 20120927
  17. ZOLENDRONIC ACID HYDRATE [Concomitant]
     Route: 065
     Dates: start: 20121115, end: 20121115
  18. ZOLENDRONIC ACID HYDRATE [Concomitant]
     Route: 065
     Dates: start: 20121227, end: 20121227
  19. ZOLENDRONIC ACID HYDRATE [Concomitant]
     Route: 065
     Dates: start: 20130124, end: 20130124
  20. ZOLENDRONIC ACID HYDRATE [Concomitant]
     Route: 065
     Dates: start: 20130417, end: 20130417
  21. ZOLENDRONIC ACID HYDRATE [Concomitant]
     Route: 065
     Dates: start: 20130318, end: 20130318
  22. ZOLENDRONIC ACID HYDRATE [Concomitant]
     Route: 065
     Dates: start: 20130417, end: 20130417
  23. ASPIRIN [Concomitant]
     Indication: PRODUCT USED FOR UNKNOWN INDICATION
     Route: 065
     Dates: start: 20120823, end: 20120828
  24. ASPIRIN [Concomitant]
     Route: 065
     Dates: start: 20120906, end: 20130219
  25. POVIDONE-IODINE [Concomitant]
     Indication: PRODUCT USED FOR UNKNOWN INDICATION
     Route: 065
     Dates: start: 20120904, end: 20120918
  26. SENOSIDE [Concomitant]
     Indication: ADVERSE EVENT
     Route: 065
     Dates: start: 20120829, end: 20130114
  27. SENOSIDE [Concomitant]
     Route: 065
     Dates: start: 20130318
  28. ZOPICLONE [Concomitant]
     Indication: PRODUCT USED FOR UNKNOWN INDICATION
     Route: 065
     Dates: start: 20120823
  29. REBAMIPIDE [Concomitant]
     Indication: PRODUCT USED FOR UNKNOWN INDICATION
     Route: 065
     Dates: start: 20120809, end: 20130115
  30. LOXOPROFEN SODIUM HYDRATE [Concomitant]
     Indication: PRODUCT USED FOR UNKNOWN INDICATION
     Route: 065
     Dates: start: 20120702, end: 20130115
  31. LOXOPROFEN SODIUM HYDRATE [Concomitant]
     Route: 065
     Dates: start: 20130203, end: 20130220
  32. SULFAMETHAZOLE TRIMETHOPRIM [Concomitant]
     Indication: PRODUCT USED FOR UNKNOWN INDICATION
     Route: 065
     Dates: start: 20120319
  33. SODIUM RABEPRAZOLE [Concomitant]
     Indication: PRODUCT USED FOR UNKNOWN INDICATION
     Route: 065
     Dates: start: 20120328
  34. PNEUMOCOCCAL VACCINE [Concomitant]
     Indication: PRODUCT USED FOR UNKNOWN INDICATION
     Route: 065
     Dates: start: 20121217, end: 20121217
  35. SODIUM CHLORIDE [Concomitant]
     Indication: ADVERSE EVENT
     Route: 065
     Dates: start: 20130216, end: 20130225
  36. HIRUDOID [Concomitant]
     Indication: ADVERSE EVENT
     Route: 065
     Dates: start: 20130222, end: 20130301
  37. DOMPERIDONE [Concomitant]
     Indication: NAUSEA
     Route: 065
     Dates: start: 20130113
  38. DOMPERIDONE [Concomitant]
     Indication: VOMITING
     Route: 065
     Dates: start: 20130113, end: 20130120
  39. DOMPERIDONE [Concomitant]
     Route: 065
     Dates: start: 20130122, end: 20130204
  40. DOMPERIDONE [Concomitant]
     Route: 065
     Dates: start: 20130214, end: 20130228
  41. SULPIRIDE [Concomitant]
     Indication: ADVERSE EVENT
     Route: 065
     Dates: start: 20130207
  42. FLUCONAZOLE [Concomitant]
     Indication: ADVERSE EVENT
     Route: 065
     Dates: start: 20130204, end: 20130212
  43. NOVAMIN [Concomitant]
     Indication: NAUSEA
     Route: 065
     Dates: start: 20130204, end: 20130204

REACTIONS (4)
  - Decreased appetite [Recovered/Resolved]
  - Infection [Recovered/Resolved]
  - Somnolence [Recovered/Resolved]
  - Back pain [Not Recovered/Not Resolved]
